FAERS Safety Report 6832638-6 (Version None)
Quarter: 2010Q3

REPORT INFORMATION
  Report Type: 
  Country: None (occurrence: None)
  Receive Date: 20100712
  Receipt Date: 20070315
  Transmission Date: 20110219
  Serious: No
  Sender: FDA-Public Use
  Company Number: US-PFIZER INC-2007020756

PATIENT
  Sex: Male
  Weight: 61.23 kg

DRUGS (6)
  1. CHANTIX [Suspect]
     Indication: EX-TOBACCO USER
     Route: 048
     Dates: start: 20070310, end: 20070314
  2. ACIPHEX [Concomitant]
     Route: 048
  3. BABYPRIN [Concomitant]
     Route: 048
  4. ZYRTEC [Concomitant]
     Route: 048
  5. DOXYCYCLINE [Concomitant]
     Route: 048
     Dates: start: 20070301, end: 20070301
  6. METRONIDAZOLE [Concomitant]
     Route: 048
     Dates: start: 20070301, end: 20070301

REACTIONS (5)
  - ABNORMAL DREAMS [None]
  - AGGRESSION [None]
  - ANGER [None]
  - CHEST PAIN [None]
  - HEADACHE [None]
